FAERS Safety Report 4654914-8 (Version None)
Quarter: 2005Q2

REPORT INFORMATION
  Report Type: 
  Country: None (occurrence: None)
  Receive Date: 20050506
  Receipt Date: 20040809
  Transmission Date: 20051028
  Serious: No
  Sender: FDA-Public Use
  Company Number: US-GLAXOSMITHKLINE-A0521529A

PATIENT
  Age: 63 Year
  Sex: Female

DRUGS (3)
  1. AMOXIL [Suspect]
     Dosage: 1G TWICE PER DAY
     Route: 048
     Dates: start: 20040625, end: 20040709
  2. ZITHROMAX [Concomitant]
  3. NEXIUM [Concomitant]

REACTIONS (2)
  - BLOOD PRESSURE INCREASED [None]
  - MIGRAINE [None]
